FAERS Safety Report 12967425 (Version 3)
Quarter: 2017Q1

REPORT INFORMATION
  Report Type: Spontaneous
  Country: ES (occurrence: ES)
  Receive Date: 20161123
  Receipt Date: 20170306
  Transmission Date: 20170428
  Serious: Yes (Death, Hospitalization, Other)
  Sender: FDA-Public Use
  Company Number: ES-BRISTOL-MYERS SQUIBB COMPANY-BMS-2016-098071

PATIENT
  Age: 81 Year
  Sex: Male

DRUGS (1)
  1. OPDIVO [Suspect]
     Active Substance: NIVOLUMAB
     Indication: NON-SMALL CELL LUNG CANCER
     Dosage: 189 MG, UNK
     Route: 065
     Dates: start: 20160520, end: 20160812

REACTIONS (4)
  - Nervous system disorder [Fatal]
  - Infection [Fatal]
  - Pneumonitis [Recovered/Resolved]
  - Cognitive disorder [Fatal]

NARRATIVE: CASE EVENT DATE: 20160826
